FAERS Safety Report 13964767 (Version 3)
Quarter: 2018Q2

REPORT INFORMATION
  Report Type: Spontaneous
  Country: US (occurrence: US)
  Receive Date: 20170913
  Receipt Date: 20180413
  Transmission Date: 20180711
  Serious: Yes (Other)
  Sender: FDA-Public Use
  Company Number: US-JNJFOC-20170820332

PATIENT
  Age: 53 Year
  Sex: Male
  Weight: 104.33 kg

DRUGS (15)
  1. SIMPONI [Suspect]
     Active Substance: GOLIMUMAB
     Indication: PSORIATIC ARTHROPATHY
     Route: 058
  2. SIMPONI [Suspect]
     Active Substance: GOLIMUMAB
     Indication: PSORIATIC ARTHROPATHY
     Route: 058
     Dates: start: 201203, end: 201206
  3. GABAPENTIN. [Concomitant]
     Active Substance: GABAPENTIN
     Indication: NEURALGIA
     Route: 065
  4. COSENTYX [Concomitant]
     Active Substance: SECUKINUMAB
     Route: 065
     Dates: end: 201711
  5. QUETIAPINE. [Concomitant]
     Active Substance: QUETIAPINE
     Indication: NEURALGIA
     Route: 065
  6. REMICADE [Concomitant]
     Active Substance: INFLIXIMAB
     Route: 042
     Dates: start: 201302, end: 201611
  7. SIMPONI [Suspect]
     Active Substance: GOLIMUMAB
     Indication: PSORIATIC ARTHROPATHY
     Route: 058
     Dates: start: 201702
  8. CYMBALTA [Concomitant]
     Active Substance: DULOXETINE HYDROCHLORIDE
     Indication: NEURALGIA
     Route: 065
  9. LORAZEPAM. [Concomitant]
     Active Substance: LORAZEPAM
     Indication: DEPRESSION
     Route: 065
  10. AMITRIPTYLINE [Concomitant]
     Active Substance: AMITRIPTYLINE
     Indication: NEURALGIA
     Route: 065
  11. ENBREL [Concomitant]
     Active Substance: ETANERCEPT
     Route: 065
     Dates: start: 201612, end: 201705
  12. CYMBALTA [Concomitant]
     Active Substance: DULOXETINE HYDROCHLORIDE
     Indication: DEPRESSION
     Route: 065
  13. TRIAMTERENE. [Concomitant]
     Active Substance: TRIAMTERENE
     Route: 065
  14. HUMIRA [Concomitant]
     Active Substance: ADALIMUMAB
     Route: 065
     Dates: start: 201209, end: 201307
  15. QUETIAPINE. [Concomitant]
     Active Substance: QUETIAPINE
     Indication: DEPRESSION
     Route: 065

REACTIONS (9)
  - Psoriatic arthropathy [Unknown]
  - Therapeutic response decreased [Unknown]
  - Drug dose omission [Not Recovered/Not Resolved]
  - Accidental exposure to product [Unknown]
  - Dehydration [Recovered/Resolved]
  - Drug tolerance [Unknown]
  - Psoriasis [Unknown]
  - Neuropathy peripheral [Not Recovered/Not Resolved]
  - Blood pressure decreased [Recovered/Resolved]

NARRATIVE: CASE EVENT DATE: 20170821
